FAERS Safety Report 24935729 (Version 1)
Quarter: 2025Q1

REPORT INFORMATION
  Report Type: Report from Study
  Country: US (occurrence: US)
  Receive Date: 20250206
  Receipt Date: 20250206
  Transmission Date: 20250409
  Serious: Yes (Other)
  Sender: EXELIXIS
  Company Number: US-EXELIXIS-CABO-24080582

PATIENT
  Sex: Female

DRUGS (10)
  1. CABOMETYX [Suspect]
     Active Substance: CABOZANTINIB S-MALATE
     Indication: Hepatocellular carcinoma
     Dosage: 40 MG, QD
     Dates: start: 20240723, end: 20240909
  2. PREGABALIN [Concomitant]
     Active Substance: PREGABALIN
  3. BACLOFEN [Concomitant]
     Active Substance: BACLOFEN
  4. OXYCODONE [Concomitant]
     Active Substance: OXYCODONE
  5. HYDROXYZINE PAMOATE [Concomitant]
     Active Substance: HYDROXYZINE PAMOATE
  6. BUPROPION [Concomitant]
     Active Substance: BUPROPION
  7. FAMOTIDINE [Concomitant]
     Active Substance: FAMOTIDINE
  8. OLANZAPINE [Concomitant]
     Active Substance: OLANZAPINE
  9. FENTANYL [Concomitant]
     Active Substance: FENTANYL
  10. SENNA [Concomitant]
     Active Substance: SENNOSIDES

REACTIONS (13)
  - Red blood cell count decreased [Not Recovered/Not Resolved]
  - Blood pressure increased [Not Recovered/Not Resolved]
  - Dehydration [Not Recovered/Not Resolved]
  - Headache [Not Recovered/Not Resolved]
  - Abdominal pain upper [Not Recovered/Not Resolved]
  - Fatigue [Not Recovered/Not Resolved]
  - Stomatitis [Not Recovered/Not Resolved]
  - Weight decreased [Not Recovered/Not Resolved]
  - Rash [Not Recovered/Not Resolved]
  - Constipation [Not Recovered/Not Resolved]
  - Blood magnesium decreased [Not Recovered/Not Resolved]
  - Hypophagia [Not Recovered/Not Resolved]
  - Peripheral swelling [Not Recovered/Not Resolved]
